FAERS Safety Report 5260814-5 (Version None)
Quarter: 2007Q1

REPORT INFORMATION
  Report Type: 
  Country: None (occurrence: None)
  Receive Date: 20070309
  Receipt Date: 20070227
  Transmission Date: 20070707
  Serious: Yes (Death, Other)
  Sender: FDA-Public Use
  Company Number: 2006UW15419

PATIENT
  Age: 65 Year
  Sex: Male
  Weight: 95 kg

DRUGS (17)
  1. TENORMIN [Suspect]
     Indication: TACHYARRHYTHMIA
     Route: 048
  2. NIASPAN [Interacting]
     Indication: HIGH DENSITY LIPOPROTEIN DECREASED
     Route: 048
     Dates: start: 20060611, end: 20060611
  3. NIASPAN [Interacting]
     Indication: BLOOD CHOLESTEROL INCREASED
     Route: 048
     Dates: start: 20060611, end: 20060611
  4. WELLBUTRIN [Interacting]
     Indication: DEPRESSION
     Route: 048
  5. EFFEXOR [Interacting]
     Indication: DEPRESSION
     Route: 048
  6. LORAZEPAM [Interacting]
     Indication: DEPRESSION
     Route: 048
  7. TRAZODONE HCL [Interacting]
     Indication: DEPRESSION
     Route: 048
  8. LANOXIN [Interacting]
     Indication: TACHYARRHYTHMIA
     Route: 048
  9. GLUCOPHAGE [Interacting]
     Indication: DIABETES MELLITUS
     Route: 048
  10. GLUCOTROL XL [Interacting]
     Indication: DIABETES MELLITUS
     Route: 048
  11. ACTOS [Interacting]
     Indication: DIABETES MELLITUS
     Route: 048
  12. TRICOR [Interacting]
     Indication: DYSLIPIDAEMIA
     Route: 048
  13. LANTUS [Interacting]
     Indication: DIABETES MELLITUS
     Route: 058
     Dates: start: 20060609
  14. LANTUS [Interacting]
     Route: 058
     Dates: end: 20060601
  15. LIPITOR [Interacting]
  16. VITAMIN CAP [Interacting]
  17. RISPERDAL [Interacting]
     Route: 048

REACTIONS (4)
  - DRUG INTERACTION [None]
  - FLUSHING [None]
  - MEDICATION ERROR [None]
  - MYOCARDIAL INFARCTION [None]
